FAERS Safety Report 5158607-2 (Version None)
Quarter: 2006Q4

REPORT INFORMATION
  Report Type: 
  Country: None (occurrence: None)
  Receive Date: 20061128
  Receipt Date: 20061108
  Transmission Date: 20070319
  Serious: Yes (Hospitalization)
  Sender: FDA-Public Use
  Company Number: JP-MERCK-0611USA03708

PATIENT
  Age: 29 Year
  Sex: Male

DRUGS (2)
  1. PEPCID RPD [Suspect]
     Indication: GASTRIC ULCER
     Route: 048
     Dates: start: 20061016, end: 20061016
  2. SUMIFERON [Concomitant]
     Indication: HEPATITIS B
     Route: 030
     Dates: start: 20060526, end: 20061020

REACTIONS (1)
  - AGRANULOCYTOSIS [None]
